FAERS Safety Report 9405599 (Version 1)
Quarter: 2013Q3

REPORT INFORMATION
  Report Type: Spontaneous
  Country: US (occurrence: US)
  Receive Date: 20130717
  Receipt Date: 20130717
  Transmission Date: 20140515
  Serious: No
  Sender: FDA-Public Use
  Company Number: US-BAUSCH-2012BL004183

PATIENT
  Age: 61 Year
  Sex: Female

DRUGS (1)
  1. BESIVANCE (BESIFLOXACIN OPHTHALMIC SUSPENSION) 0.6% [Suspect]
     Indication: EYE INFECTION
     Dosage: 1 DROP; 3 TIMES A DAY; OPHTHALMIC
     Route: 047
     Dates: start: 20120621, end: 20120624

REACTIONS (4)
  - Eye pruritus [Recovered/Resolved]
  - Ocular hyperaemia [Recovered/Resolved]
  - Eye swelling [Recovered/Resolved]
  - Lacrimation increased [Recovered/Resolved]
